FAERS Safety Report 18414286 (Version 5)
Quarter: 2021Q1

REPORT INFORMATION
  Report Type: Spontaneous
  Country: US (occurrence: US)
  Receive Date: 20201022
  Receipt Date: 20210316
  Transmission Date: 20210419
  Serious: No
  Sender: FDA-Public Use
  Company Number: US-GLAXOSMITHKLINE-US2020AMR210014

PATIENT
  Age: 32 Year
  Sex: Female

DRUGS (3)
  1. ZEJULA [Suspect]
     Active Substance: NIRAPARIB
     Indication: OVARIAN CANCER
     Dosage: 200 MG, QD
     Route: 048
     Dates: start: 20201014
  2. ZEJULA [Suspect]
     Active Substance: NIRAPARIB
     Dosage: 200 MG, QD
     Route: 048
  3. ZEJULA [Suspect]
     Active Substance: NIRAPARIB
     Dosage: 200 MG, QD

REACTIONS (11)
  - Decreased appetite [Recovered/Resolved]
  - Heart rate increased [Unknown]
  - Anxiety [Unknown]
  - Insomnia [Recovered/Resolved]
  - Drug monitoring procedure not performed [Unknown]
  - Dry mouth [Unknown]
  - Headache [Not Recovered/Not Resolved]
  - Abdominal pain upper [Unknown]
  - Laboratory test abnormal [Recovered/Resolved]
  - Throat tightness [Unknown]
  - Alopecia [Not Recovered/Not Resolved]

NARRATIVE: CASE EVENT DATE: 202010
